FAERS Safety Report 6488000-1 (Version None)
Quarter: 2009Q4

REPORT INFORMATION
  Report Type: 
  Country: None (occurrence: None)
  Receive Date: 20091210
  Receipt Date: 20091202
  Transmission Date: 20100525
  Serious: Yes (Other)
  Sender: FDA-Public Use
  Company Number: PHHY2009SE53631

PATIENT
  Sex: Male

DRUGS (1)
  1. ACLASTA [Suspect]
     Indication: OSTEOPOROSIS
     Dosage: UNK
     Dates: start: 20091112

REACTIONS (9)
  - ARTHRALGIA [None]
  - CARDIAC FIBRILLATION [None]
  - FEELING COLD [None]
  - HEART RATE INCREASED [None]
  - HEART RATE IRREGULAR [None]
  - MYALGIA [None]
  - PAIN [None]
  - PAIN IN EXTREMITY [None]
  - THIRST [None]
